FAERS Safety Report 4282547-4 (Version None)
Quarter: 2004Q1

REPORT INFORMATION
  Report Type: 
  Country: None (occurrence: None)
  Receive Date: 20040129
  Receipt Date: 20040113
  Transmission Date: 20041129
  Serious: Yes (Hospitalization)
  Sender: FDA-Public Use
  Company Number: 180764

PATIENT
  Age: 54 Year
  Sex: Female

DRUGS (1)
  1. AVONEX [Suspect]
     Indication: MULTIPLE SCLEROSIS
     Dosage: 30 MCG QW IM
     Route: 030
     Dates: start: 19990401

REACTIONS (5)
  - CONSTIPATION [None]
  - DIFFICULTY IN WALKING [None]
  - GASTROINTESTINAL DISORDER [None]
  - MENISCUS LESION [None]
  - MUSCLE SPASTICITY [None]
